FAERS Safety Report 7312550-9 (Version None)
Quarter: 2011Q1

REPORT INFORMATION
  Report Type: 
  Country: None (occurrence: None)
  Receive Date: 20110224
  Receipt Date: 20110215
  Transmission Date: 20110831
  Serious: Yes (Other)
  Sender: FDA-Public Use
  Company Number: US-ASTRAZENECA-2011SE08932

PATIENT
  Sex: Female

DRUGS (3)
  1. TOPROL-XL [Suspect]
     Indication: CARDIAC DISORDER
     Route: 048
     Dates: start: 19950101
  2. LASIX [Suspect]
     Indication: CARDIAC DISORDER
     Route: 048
     Dates: start: 19960101
  3. ACCUPRIL [Suspect]
     Indication: CARDIAC DISORDER
     Route: 048
     Dates: start: 19950101

REACTIONS (3)
  - DYSPNOEA [None]
  - EJECTION FRACTION DECREASED [None]
  - ATRIAL FIBRILLATION [None]
